FAERS Safety Report 12697627 (Version 4)
Quarter: 2016Q4

REPORT INFORMATION
  Report Type: Spontaneous
  Country: JP (occurrence: JP)
  Receive Date: 20160830
  Receipt Date: 20161014
  Transmission Date: 20170207
  Serious: Yes (Hospitalization)
  Sender: FDA-Public Use
  Company Number: PHJP2016JP024158

PATIENT
  Age: 48 Year
  Sex: Female
  Weight: 30 kg

DRUGS (5)
  1. TEGRETOL [Suspect]
     Active Substance: CARBAMAZEPINE
     Dosage: 200 MG, QD
     Route: 048
     Dates: start: 20160516, end: 20160824
  2. NELBON [Concomitant]
     Active Substance: NITRAZEPAM
     Indication: INSOMNIA
     Dosage: 5 MG, QD
     Route: 048
  3. TEGRETOL [Suspect]
     Active Substance: CARBAMAZEPINE
     Indication: SCHIZOPHRENIA
     Dosage: 200 MG, QD
     Route: 048
     Dates: end: 20160513
  4. RISPERDAL [Concomitant]
     Active Substance: RISPERIDONE
     Indication: SCHIZOPHRENIA
     Dosage: 4 MG, QD
     Route: 048
  5. SILECE [Concomitant]
     Active Substance: FLUNITRAZEPAM
     Indication: INSOMNIA
     Dosage: 2 MG, QD
     Route: 048

REACTIONS (7)
  - Ileus paralytic [Recovered/Resolved]
  - Altered state of consciousness [Unknown]
  - Intestinal obstruction [Recovering/Resolving]
  - Decreased appetite [Recovering/Resolving]
  - Product use issue [Unknown]
  - Abdominal distension [Unknown]
  - Dysphagia [Unknown]

NARRATIVE: CASE EVENT DATE: 20160418
